FAERS Safety Report 21553883 (Version 1)
Quarter: 2022Q4

REPORT INFORMATION
  Report Type: Spontaneous
  Country: DK (occurrence: DK)
  Receive Date: 20221104
  Receipt Date: 20221104
  Transmission Date: 20230113
  Serious: Yes (Disabling)
  Sender: FDA-Public Use
  Company Number: None

PATIENT
  Age: 50 Year
  Sex: Male

DRUGS (2)
  1. PREDNISOLONE [Suspect]
     Active Substance: PREDNISOLONE
     Indication: Bronchopulmonary aspergillosis allergic
     Dosage: DOSAGE: UNKNOWN. STRENGTH: UNKNOWN, TABLET (UNCOATED, ORAL)
     Route: 048
     Dates: start: 2017
  2. ALENDRONIC ACID [Concomitant]
     Active Substance: ALENDRONIC ACID
     Indication: Osteoporosis
     Dates: start: 201712

REACTIONS (3)
  - Pain [Not Recovered/Not Resolved]
  - Osteonecrosis [Unknown]
  - Joint range of motion decreased [Unknown]

NARRATIVE: CASE EVENT DATE: 20190901
